FAERS Safety Report 25009671 (Version 2)
Quarter: 2025Q1

REPORT INFORMATION
  Report Type: Spontaneous
  Country: FR (occurrence: FR)
  Receive Date: 20250225
  Receipt Date: 20250304
  Transmission Date: 20250409
  Serious: Yes (Hospitalization)
  Sender: OTSUKA
  Company Number: None

PATIENT
  Age: 15 Year
  Sex: Female
  Weight: 85 kg

DRUGS (2)
  1. ARIPIPRAZOLE [Suspect]
     Active Substance: ARIPIPRAZOLE
     Indication: Mental disorder
     Dosage: 28 DF, QD ((ALLEGEDLY) TOOK 28 TABLETS OF 10 MG)
     Route: 048
     Dates: start: 20250201, end: 20250201
  2. DIAZEPAM [Suspect]
     Active Substance: DIAZEPAM
     Indication: Mental disorder
     Dosage: 10 DF, QD ((ALLEGEDLY) TOOK 10 TABLETS OF 5 MG)
     Route: 048
     Dates: start: 20250201, end: 20250201

REACTIONS (1)
  - Toxicity to various agents [Recovered/Resolved]

NARRATIVE: CASE EVENT DATE: 20250201
